FAERS Safety Report 8352463-7 (Version None)
Quarter: 2012Q2

REPORT INFORMATION
  Report Type: 
  Country: None (occurrence: None)
  Receive Date: 20120511
  Receipt Date: 20120503
  Transmission Date: 20120825
  Serious: Yes (Hospitalization, Other)
  Sender: FDA-Public Use
  Company Number: US-BAYER-2011-111086

PATIENT
  Age: 31 Year
  Sex: Female
  Weight: 127.89 kg

DRUGS (7)
  1. GLYBURIDE AND METFORMIN HYDROCHLORIDE [Concomitant]
     Dosage: 2.5MG/500MG BID
     Route: 048
  2. NEXIUM [Concomitant]
     Dosage: 40 MG, DAILY
     Route: 048
  3. YAZ [Suspect]
     Indication: PREMENSTRUAL SYNDROME
  4. YAZ [Suspect]
     Indication: ACNE
     Dosage: UNK
     Dates: start: 20090801, end: 20100101
  5. YAZ [Suspect]
  6. SYNTHROID [Concomitant]
     Dosage: 0.075 MG, DAILY
     Route: 048
  7. UNCODEABLE ^UNCLASSIFIABLE^ [Concomitant]
     Dosage: 150 MG, BID
     Route: 048

REACTIONS (8)
  - CHOLECYSTITIS CHRONIC [None]
  - SCAR [None]
  - GALLBLADDER INJURY [None]
  - INJURY [None]
  - PAIN [None]
  - EMOTIONAL DISTRESS [None]
  - GENERAL PHYSICAL HEALTH DETERIORATION [None]
  - ANXIETY [None]
